FAERS Safety Report 6031024-9 (Version None)
Quarter: 2009Q1

REPORT INFORMATION
  Report Type: 
  Country: None (occurrence: None)
  Receive Date: 20090108
  Receipt Date: 20081231
  Transmission Date: 20090719
  Serious: Yes (Other)
  Sender: FDA-Public Use
  Company Number: FI-JNJFOC-20081207019

PATIENT
  Sex: Male

DRUGS (3)
  1. RISPERDAL [Suspect]
     Route: 048
  2. RISPERDAL [Suspect]
     Indication: TOURETTE'S DISORDER
     Route: 048
  3. RISPERIDONE [Suspect]
     Indication: TOURETTE'S DISORDER
     Route: 048

REACTIONS (2)
  - HYPOTHERMIA [None]
  - OFF LABEL USE [None]
